FAERS Safety Report 25699853 (Version 1)
Quarter: 2025Q3

REPORT INFORMATION
  Report Type: Spontaneous
  Country: US (occurrence: US)
  Receive Date: 20250819
  Receipt Date: 20250819
  Transmission Date: 20251021
  Serious: Yes (Other)
  Sender: MYLAN
  Company Number: US-MYLANLABS-2025M1069221

PATIENT
  Age: 64 Year
  Sex: Female

DRUGS (20)
  1. PREDNISONE [Suspect]
     Active Substance: PREDNISONE
     Indication: Cough
  2. PREDNISONE [Suspect]
     Active Substance: PREDNISONE
     Indication: Chest discomfort
     Route: 065
  3. PREDNISONE [Suspect]
     Active Substance: PREDNISONE
     Indication: Dyspnoea
     Route: 065
  4. PREDNISONE [Suspect]
     Active Substance: PREDNISONE
  5. AZITHROMYCIN [Suspect]
     Active Substance: AZITHROMYCIN
     Indication: Cough
  6. AZITHROMYCIN [Suspect]
     Active Substance: AZITHROMYCIN
     Indication: Chest discomfort
     Route: 065
  7. AZITHROMYCIN [Suspect]
     Active Substance: AZITHROMYCIN
     Indication: Dyspnoea
     Route: 065
  8. AZITHROMYCIN [Suspect]
     Active Substance: AZITHROMYCIN
     Indication: Antibiotic therapy
  9. GUAIFENESIN [Suspect]
     Active Substance: GUAIFENESIN
     Indication: Cough
  10. GUAIFENESIN [Suspect]
     Active Substance: GUAIFENESIN
     Indication: Chest discomfort
     Route: 065
  11. GUAIFENESIN [Suspect]
     Active Substance: GUAIFENESIN
     Indication: Dyspnoea
     Route: 065
  12. GUAIFENESIN [Suspect]
     Active Substance: GUAIFENESIN
  13. UPADACITINIB [Concomitant]
     Active Substance: UPADACITINIB
     Indication: Psoriatic arthropathy
  14. UPADACITINIB [Concomitant]
     Active Substance: UPADACITINIB
     Route: 065
  15. UPADACITINIB [Concomitant]
     Active Substance: UPADACITINIB
     Route: 065
  16. UPADACITINIB [Concomitant]
     Active Substance: UPADACITINIB
  17. TOFACITINIB [Concomitant]
     Active Substance: TOFACITINIB
     Indication: Psoriatic arthropathy
  18. TOFACITINIB [Concomitant]
     Active Substance: TOFACITINIB
     Route: 065
  19. TOFACITINIB [Concomitant]
     Active Substance: TOFACITINIB
     Route: 065
  20. TOFACITINIB [Concomitant]
     Active Substance: TOFACITINIB

REACTIONS (1)
  - Drug ineffective [Unknown]
